FAERS Safety Report 21242066 (Version 4)
Quarter: 2022Q3

REPORT INFORMATION
  Report Type: Spontaneous
  Country: US (occurrence: US)
  Receive Date: 20220823
  Receipt Date: 20220920
  Transmission Date: 20221027
  Serious: Yes (Other)
  Sender: FDA-Public Use
  Company Number: US-PFIZER INC-2019147352

PATIENT
  Age: 87 Year
  Sex: Female
  Weight: 45.36 kg

DRUGS (6)
  1. CADUET [Suspect]
     Active Substance: AMLODIPINE BESYLATE\ATORVASTATIN CALCIUM
     Indication: Blood cholesterol increased
     Dosage: UNK, 1X/DAY(10/20 ONCE DAILY)
     Route: 048
  2. CADUET [Suspect]
     Active Substance: AMLODIPINE BESYLATE\ATORVASTATIN CALCIUM
     Indication: Hypertension
  3. PREMARIN [Suspect]
     Active Substance: ESTROGENS, CONJUGATED
     Indication: Postmenopause
     Dosage: 1 GRAM , TWO TO THREE TIMES WEEKLY
     Route: 067
     Dates: start: 20190401
  4. PREMARIN [Suspect]
     Active Substance: ESTROGENS, CONJUGATED
     Indication: Hormone replacement therapy
     Dosage: 1 GRAM,  TWO TO THREE TIMES WEEKLY
     Route: 067
     Dates: start: 20190729
  5. PREMARIN [Suspect]
     Active Substance: ESTROGENS, CONJUGATED
     Indication: Vulvovaginal dryness
     Dosage: 1 GRAM,  TWO TO THREE TIMES WEEKLY
     Route: 067
     Dates: start: 20211102
  6. PREMARIN [Suspect]
     Active Substance: ESTROGENS, CONJUGATED
     Dosage: UNK, 2X/WEEK (1 APPLICATOR FULL TWICE A WEEK)
     Route: 067

REACTIONS (2)
  - Arthritis [Not Recovered/Not Resolved]
  - Off label use [Unknown]

NARRATIVE: CASE EVENT DATE: 20190401
